FAERS Safety Report 19559744 (Version 1)
Quarter: 2021Q3

REPORT INFORMATION
  Report Type: Spontaneous
  Country: US (occurrence: US)
  Receive Date: 20210715
  Receipt Date: 20210715
  Transmission Date: 20211014
  Serious: Yes (Disabling)
  Sender: FDA-Public Use
  Company Number: None

PATIENT
  Age: 61 Year
  Sex: Female
  Weight: 61.2 kg

DRUGS (8)
  1. FIBER [Concomitant]
     Active Substance: PSYLLIUM HUSK
  2. VITAMIN C [Concomitant]
     Active Substance: ASCORBIC ACID
  3. FOLBEE [Concomitant]
     Active Substance: CYANOCOBALAMIN\FOLIC ACID\PYRIDOXINE HYDROCHLORIDE
  4. CALCIUM [Concomitant]
     Active Substance: CALCIUM
  5. VIT D [Concomitant]
     Active Substance: VITAMIN D NOS
  6. PROLIA [Suspect]
     Active Substance: DENOSUMAB
     Indication: OSTEOPOROSIS
     Dosage: ?          QUANTITY:1 INJECTION(S);OTHER FREQUENCY:TWICE YEARLY;?
     Route: 058
     Dates: start: 20210105
  7. OMEGA 3 [Concomitant]
     Active Substance: OMEGA-3 FATTY ACIDS
  8. MULTIVITAMIN [Concomitant]
     Active Substance: VITAMINS

REACTIONS (6)
  - Dizziness [None]
  - Rash [None]
  - Quality of life decreased [None]
  - Bronchitis [None]
  - Oropharyngeal pain [None]
  - Vision blurred [None]

NARRATIVE: CASE EVENT DATE: 20210629
